FAERS Safety Report 4743640-2 (Version None)
Quarter: 2005Q3

REPORT INFORMATION
  Report Type: 
  Country: None (occurrence: None)
  Receive Date: 20050812
  Receipt Date: 20050627
  Transmission Date: 20060218
  Serious: Yes (Hospitalization)
  Sender: FDA-Public Use
  Company Number: JP-BRISTOL-MYERS SQUIBB COMPANY-13069257

PATIENT
  Age: 72 Year
  Sex: Female

DRUGS (8)
  1. MEVALOTIN [Suspect]
     Indication: HYPERLIPIDAEMIA
     Route: 048
     Dates: end: 20050606
  2. ADALAT [Concomitant]
     Indication: HYPERTENSION
  3. CARDENALIN [Concomitant]
     Indication: HYPERTENSION
  4. TANATRIL [Concomitant]
     Indication: HYPERTENSION
  5. SELECTOL [Concomitant]
     Indication: HYPERTENSION
  6. BASEN [Concomitant]
     Indication: DIABETES MELLITUS
  7. SENNOSIDES [Concomitant]
  8. DEAMELIN-S [Concomitant]
     Indication: DIABETES MELLITUS

REACTIONS (3)
  - BACTERIAL INFECTION [None]
  - RENAL FAILURE [None]
  - RHABDOMYOLYSIS [None]
